FAERS Safety Report 8665436 (Version 3)
Quarter: 2014Q1

REPORT INFORMATION
  Report Type: Spontaneous
  Country: US (occurrence: US)
  Receive Date: 20120716
  Receipt Date: 20140129
  Transmission Date: 20141002
  Serious: Yes (Hospitalization, Other)
  Sender: FDA-Public Use
  Company Number: US-BAYER-2012-069853

PATIENT
  Age: 30 Year
  Sex: Female
  Weight: 58.96 kg

DRUGS (1)
  1. YASMIN [Suspect]
     Indication: PREMENSTRUAL SYNDROME
     Dosage: UNK
     Dates: start: 2009, end: 2010

REACTIONS (7)
  - Cholecystectomy [None]
  - Injury [None]
  - Pain [None]
  - Emotional distress [None]
  - Psychological trauma [None]
  - Anxiety [None]
  - Cholecystitis chronic [None]
